FAERS Safety Report 13908918 (Version 2)
Quarter: 2018Q2

REPORT INFORMATION
  Report Type: Spontaneous
  Country: DE (occurrence: DE)
  Receive Date: 20170828
  Receipt Date: 20180618
  Transmission Date: 20180711
  Serious: Yes (Life-Threatening, Hospitalization, Other)
  Sender: FDA-Public Use
  Company Number: DE-ACCORD-057707

PATIENT
  Age: 25 Year
  Sex: Female
  Weight: 65 kg

DRUGS (2)
  1. QUETIAPINE. [Suspect]
     Active Substance: QUETIAPINE
     Indication: BORDERLINE PERSONALITY DISORDER
     Dosage: 10 G OF (150 MG/KG) POTENTIALLY LETHAL
     Route: 048
  2. AMITRIPTYLINE [Suspect]
     Active Substance: AMITRIPTYLINE
     Indication: BORDERLINE PERSONALITY DISORDER
     Dosage: 5.5 G (85 MG /KG) POTENTIALLY LETHAL DOSE
     Route: 048

REACTIONS (12)
  - Hyperthermia [Unknown]
  - Shock [Recovering/Resolving]
  - Off label use [Unknown]
  - Ventricular tachycardia [Recovered/Resolved]
  - Electrocardiogram QT prolonged [Recovering/Resolving]
  - Alcohol poisoning [Recovering/Resolving]
  - Myoclonus [Unknown]
  - Vasoplegia syndrome [Unknown]
  - Toxicity to various agents [Recovered/Resolved]
  - Arrhythmia [Recovered/Resolved]
  - Coma [Unknown]
  - Anticholinergic syndrome [Recovering/Resolving]
